FAERS Safety Report 6679957-4 (Version None)
Quarter: 2010Q2

REPORT INFORMATION
  Report Type: 
  Country: None (occurrence: None)
  Receive Date: 20100413
  Receipt Date: 20100413
  Transmission Date: 20101027
  Serious: Yes (Other)
  Sender: FDA-Public Use
  Company Number: IS-ABBOTT-10P-044-0635191-00

PATIENT
  Sex: Female

DRUGS (11)
  1. HUMIRA [Suspect]
     Indication: RHEUMATOID ARTHRITIS
     Dates: start: 20060101
  2. LEVOTHYROXINE SODIUM [Concomitant]
     Indication: DRUG USE FOR UNKNOWN INDICATION
  3. METHOTREXATE [Concomitant]
     Indication: DRUG USE FOR UNKNOWN INDICATION
     Dosage: 5 TABLETS A DAY
  4. GABAPENTIN [Concomitant]
     Indication: DRUG USE FOR UNKNOWN INDICATION
  5. CORNEAGEL FOR EYES [Concomitant]
     Indication: DRUG USE FOR UNKNOWN INDICATION
  6. FOLIC ACID [Concomitant]
     Indication: DRUG USE FOR UNKNOWN INDICATION
  7. NOZINAN [Concomitant]
     Indication: DRUG USE FOR UNKNOWN INDICATION
  8. FUSITHALMIC [Concomitant]
     Indication: DRUG USE FOR UNKNOWN INDICATION
  9. KESTINE [Concomitant]
     Indication: DRUG USE FOR UNKNOWN INDICATION
  10. PARIET [Concomitant]
     Indication: DRUG USE FOR UNKNOWN INDICATION
  11. PARKODEIN FORTE [Concomitant]
     Indication: DRUG USE FOR UNKNOWN INDICATION

REACTIONS (6)
  - ARTHRALGIA [None]
  - INCORRECT STORAGE OF DRUG [None]
  - PAIN [None]
  - POOR QUALITY DRUG ADMINISTERED [None]
  - RECTAL PROLAPSE [None]
  - UTERINE DILATION AND CURETTAGE [None]
